FAERS Safety Report 5574969-6 (Version None)
Quarter: 2007Q4

REPORT INFORMATION
  Report Type: 
  Country: None (occurrence: None)
  Receive Date: 20071130
  Receipt Date: 20070806
  Transmission Date: 20080405
  Serious: No
  Sender: FDA-Public Use
  Company Number: US200708001382

PATIENT
  Age: 58 Year
  Sex: Female

DRUGS (6)
  1. BYETTA [Suspect]
     Indication: TYPE 1 DIABETES MELLITUS
     Dosage: 5 UG/ 2/D, SUBCUTANEOUS
     Route: 058
     Dates: start: 20060101, end: 20060301
  2. EXENATIDE 5MCG PEN, DISPOSABLE DEVICE (EXENATIDE PEN (5MCG)) PEN, DISP [Concomitant]
  3. LEVEMIR (INSULIN DETERMIR) [Concomitant]
  4. NOVOLOG [Concomitant]
  5. AVALIDE [Concomitant]
  6. PLETAL [Concomitant]

REACTIONS (1)
  - BLISTER [None]
